FAERS Safety Report 10673559 (Version 1)
Quarter: 2014Q4

REPORT INFORMATION
  Report Type: Spontaneous
  Country: US (occurrence: None)
  Receive Date: 20141222
  Receipt Date: 20141222
  Transmission Date: 20150529
  Serious: Yes (Life-Threatening, Hospitalization)
  Sender: FDA-Public Use
  Company Number: None

PATIENT
  Age: 48 Year
  Sex: Female
  Weight: 63.5 kg

DRUGS (1)
  1. FERRLECIT [Suspect]
     Active Substance: SODIUM FERRIC GLUCONATE COMPLEX
     Indication: IRON DEFICIENCY ANAEMIA
     Route: 042
     Dates: start: 20141201, end: 20141212

REACTIONS (7)
  - Peripheral swelling [None]
  - Loss of consciousness [None]
  - Hypotension [None]
  - Swollen tongue [None]
  - Infusion related reaction [None]
  - Infusion site swelling [None]
  - Swelling face [None]

NARRATIVE: CASE EVENT DATE: 20141212
